FAERS Safety Report 13067880 (Version 2)
Quarter: 2016Q4

REPORT INFORMATION
  Report Type: Spontaneous
  Country: CN (occurrence: CN)
  Receive Date: 20161228
  Receipt Date: 20161228
  Transmission Date: 20170207
  Serious: Yes (Death)
  Sender: FDA-Public Use
  Company Number: CN-BAYER-2016-241313

PATIENT
  Age: 52 Year
  Sex: Male

DRUGS (8)
  1. IOPROMIDE [Suspect]
     Active Substance: IOPROMIDE
  2. CREATININE [Concomitant]
     Active Substance: CREATININE
     Indication: THROMBOSIS PROPHYLAXIS
  3. NITROGLYCERIN. [Concomitant]
     Active Substance: NITROGLYCERIN
  4. ISOSORBIDE DINITRATE. [Concomitant]
     Active Substance: ISOSORBIDE DINITRATE
  5. ASPIRIN. [Suspect]
     Active Substance: ASPIRIN
     Indication: ANTIPLATELET THERAPY
  6. CREATININE [Concomitant]
     Active Substance: CREATININE
     Indication: SUPPORTIVE CARE
  7. HEPARIN CALCIUM [Concomitant]
     Active Substance: HEPARIN CALCIUM
     Indication: COAGULATION TIME ABNORMAL
  8. ATORVASTATIN [Concomitant]
     Active Substance: ATORVASTATIN

REACTIONS (2)
  - Anaphylactic shock [Fatal]
  - Respiratory failure [Fatal]
